FAERS Safety Report 22189611 (Version 1)
Quarter: 2023Q2

REPORT INFORMATION
  Report Type: Report from Study
  Country: BE (occurrence: BE)
  Receive Date: 20230410
  Receipt Date: 20230410
  Transmission Date: 20230721
  Serious: Yes (Life-Threatening, Hospitalization, Other)
  Sender: FDA-Public Use
  Company Number: BE-CELLTRION INC.-2021BE019417

PATIENT

DRUGS (207)
  1. RITUXIMAB [Suspect]
     Active Substance: RITUXIMAB
     Indication: Diffuse large B-cell lymphoma stage III
     Dosage: 375 MILLIGRAM/SQ. METER, 1Q3W DOSE:1Q3W
     Route: 042
     Dates: start: 20210607, end: 20210810
  2. RITUXIMAB [Suspect]
     Active Substance: RITUXIMAB
     Indication: Diffuse large B-cell lymphoma stage III
     Dosage: 375 MG/M2
     Route: 065
     Dates: start: 20210810
  3. RITUXIMAB [Suspect]
     Active Substance: RITUXIMAB
     Dosage: 375 MILLIGRAM/SQ. METER, 1Q3W
     Route: 042
     Dates: start: 20210607
  4. RITUXIMAB [Suspect]
     Active Substance: RITUXIMAB
     Dosage: AT CYCLE 5 DAY 1 (C5D1)
     Route: 065
     Dates: start: 20210831
  5. RITUXIMAB [Suspect]
     Active Substance: RITUXIMAB
     Dosage: 375 MG/M2
     Route: 042
     Dates: start: 20210921, end: 20210921
  6. RITUXIMAB [Suspect]
     Active Substance: RITUXIMAB
     Dosage: 750 MILLIGRAM,QD
     Route: 042
     Dates: start: 20210607, end: 20210607
  7. RITUXIMAB [Suspect]
     Active Substance: RITUXIMAB
     Dosage: 750 MILLIGRAM,QD
     Route: 042
     Dates: start: 20210629, end: 20210629
  8. RITUXIMAB [Suspect]
     Active Substance: RITUXIMAB
     Dosage: 375 MILLIGRAM/SQ. METER, 1Q3W DOSE:1Q3W
     Route: 042
     Dates: start: 20210607, end: 20210921
  9. RITUXIMAB [Suspect]
     Active Substance: RITUXIMAB
     Dosage: 375 MG/M2,PRN
     Route: 042
     Dates: start: 20210921, end: 20210921
  10. RITUXIMAB [Suspect]
     Active Substance: RITUXIMAB
     Dosage: 375 MG/M2,EVERY 3 WK
     Route: 042
     Dates: start: 20210607, end: 20210810
  11. RITUXIMAB [Suspect]
     Active Substance: RITUXIMAB
     Dosage: 375 MILLIGRAM/SQ. METER, 1Q3W
     Route: 042
     Dates: start: 20210607
  12. RITUXIMAB [Suspect]
     Active Substance: RITUXIMAB
     Dosage: AT CYCLE 5 DAY 1 (C5D1)
     Route: 065
     Dates: start: 20210831
  13. RITUXIMAB [Suspect]
     Active Substance: RITUXIMAB
     Dosage: 375 MG/M2,PRN
     Route: 065
     Dates: start: 20210810
  14. RITUXIMAB [Suspect]
     Active Substance: RITUXIMAB
     Dosage: 375 MG/M2,PRN
     Route: 065
     Dates: start: 20210810
  15. RITUXIMAB [Suspect]
     Active Substance: RITUXIMAB
     Dosage: DOSE:1Q3W
     Dates: start: 20210607
  16. DOXORUBICIN HYDROCHLORIDE [Suspect]
     Active Substance: DOXORUBICIN HYDROCHLORIDE
     Indication: Diffuse large B-cell lymphoma stage III
     Dosage: EVERY 3 WEEKS
     Route: 042
     Dates: start: 20210608, end: 20211010
  17. DOXORUBICIN HYDROCHLORIDE [Suspect]
     Active Substance: DOXORUBICIN HYDROCHLORIDE
     Dosage: 50 MG/M2
     Route: 042
     Dates: start: 20210921, end: 20210921
  18. DOXORUBICIN HYDROCHLORIDE [Suspect]
     Active Substance: DOXORUBICIN HYDROCHLORIDE
     Dosage: 100 MG, QD
     Route: 042
     Dates: start: 20210608, end: 20210608
  19. DOXORUBICIN HYDROCHLORIDE [Suspect]
     Active Substance: DOXORUBICIN HYDROCHLORIDE
     Dosage: 100 MG, QD
     Route: 042
     Dates: start: 20210629, end: 20210629
  20. CYCLOPHOSPHAMIDE [Suspect]
     Active Substance: CYCLOPHOSPHAMIDE
     Indication: Diffuse large B-cell lymphoma stage III
     Dosage: 750 MG/M2, 1Q3W
     Route: 042
     Dates: start: 20210608
  21. CYCLOPHOSPHAMIDE [Suspect]
     Active Substance: CYCLOPHOSPHAMIDE
     Dosage: 750 MG/M2, 1 EVERY 3 WEEKS (1Q3W)
     Route: 042
     Dates: start: 20210608, end: 20210921
  22. CYCLOPHOSPHAMIDE [Suspect]
     Active Substance: CYCLOPHOSPHAMIDE
     Dosage: 750 MG/M2, 1 EVERY 3 WEEKS (1Q3W)
     Route: 042
     Dates: start: 20210608, end: 20210810
  23. CYCLOPHOSPHAMIDE [Suspect]
     Active Substance: CYCLOPHOSPHAMIDE
     Dosage: 1500 MG, SINGLE
     Route: 042
     Dates: start: 20210608, end: 20210608
  24. CYCLOPHOSPHAMIDE [Suspect]
     Active Substance: CYCLOPHOSPHAMIDE
     Dosage: 1500 MG, SINGLE
     Route: 042
     Dates: start: 20210629, end: 20210629
  25. CYCLOPHOSPHAMIDE [Suspect]
     Active Substance: CYCLOPHOSPHAMIDE
     Indication: Diffuse large B-cell lymphoma stage III
     Dosage: 750 MG/M2, 1 EVERY 3 WEEKS (1Q3W)
     Route: 042
     Dates: start: 20210608, end: 20210921
  26. CYCLOPHOSPHAMIDE [Suspect]
     Active Substance: CYCLOPHOSPHAMIDE
     Dosage: 750 MG/M2,PRN
     Route: 042
     Dates: start: 20210921, end: 20210921
  27. CYCLOPHOSPHAMIDE [Suspect]
     Active Substance: CYCLOPHOSPHAMIDE
     Dosage: 750 MG/M2,EVERY 3 WK
     Route: 042
     Dates: start: 20210608, end: 20210810
  28. CYCLOPHOSPHAMIDE [Suspect]
     Active Substance: CYCLOPHOSPHAMIDE
     Dosage: AT CYCLE 5 DAY 1 (C5D1)
     Route: 065
     Dates: start: 20210831
  29. CYCLOPHOSPHAMIDE [Suspect]
     Active Substance: CYCLOPHOSPHAMIDE
     Dosage: 750 MG/M2,PRN
     Route: 065
     Dates: start: 20210810
  30. CYCLOPHOSPHAMIDE [Suspect]
     Active Substance: CYCLOPHOSPHAMIDE
     Dosage: 1500 MILLIGRAM,QD
     Route: 065
     Dates: start: 20210629, end: 20210629
  31. CYCLOPHOSPHAMIDE [Suspect]
     Active Substance: CYCLOPHOSPHAMIDE
     Dosage: 1 DAY
     Route: 065
     Dates: start: 20210608, end: 20210608
  32. CYCLOPHOSPHAMIDE [Suspect]
     Active Substance: CYCLOPHOSPHAMIDE
     Dosage: DOSE FREQUENCY:1Q3W
     Route: 065
     Dates: start: 20210608, end: 20210608
  33. CYCLOPHOSPHAMIDE [Suspect]
     Active Substance: CYCLOPHOSPHAMIDE
     Dosage: 750 MG/M2,PRN
     Route: 042
     Dates: start: 20210921, end: 20210921
  34. CYCLOPHOSPHAMIDE [Suspect]
     Active Substance: CYCLOPHOSPHAMIDE
     Dosage: 750 MG/M2,EVERY 3 WK
     Route: 042
     Dates: start: 20210608, end: 20210810
  35. DOXIL [Suspect]
     Active Substance: DOXORUBICIN HYDROCHLORIDE
     Indication: Diffuse large B-cell lymphoma stage III
     Dosage: 50 MG/M2
     Route: 065
     Dates: start: 20210810
  36. DOXIL [Suspect]
     Active Substance: DOXORUBICIN HYDROCHLORIDE
     Dosage: AT CYCLE 5 DAY 1 (C5D1)
     Route: 065
     Dates: start: 20210810
  37. DOXIL [Suspect]
     Active Substance: DOXORUBICIN HYDROCHLORIDE
     Dosage: AT CYCLE 5 DAY 1 (C5D1)
     Route: 065
     Dates: start: 20210831
  38. DOXIL [Suspect]
     Active Substance: DOXORUBICIN HYDROCHLORIDE
     Indication: Diffuse large B-cell lymphoma stage III
     Dosage: 50 MILLIGRAM/SQ. METER,1Q3W
     Route: 042
     Dates: start: 20210608
  39. DOXORUBICIN [Suspect]
     Active Substance: DOXORUBICIN
     Indication: Diffuse large B-cell lymphoma stage III
     Dosage: 50 MG/M2,EVERY 3 WK
     Route: 042
     Dates: start: 20210608, end: 20210810
  40. DOXORUBICIN [Suspect]
     Active Substance: DOXORUBICIN
     Indication: Diffuse large B-cell lymphoma stage III
     Dosage: 50 MG/M2,PRN
     Route: 042
     Dates: start: 20210921, end: 20210921
  41. DOXORUBICIN [Suspect]
     Active Substance: DOXORUBICIN
     Dosage: 50 MILLIGRAM/SQ. METER,1Q3W
     Route: 042
     Dates: start: 20210608
  42. DOXORUBICIN [Suspect]
     Active Substance: DOXORUBICIN
     Dosage: AT CYCLE 5 DAY 1 (C5D1)
     Route: 065
     Dates: start: 20210831
  43. DOXORUBICIN [Suspect]
     Active Substance: DOXORUBICIN
     Dosage: 50 MG/M2,PRN
     Route: 065
     Dates: start: 20210810
  44. DOXORUBICIN [Suspect]
     Active Substance: DOXORUBICIN
     Dosage: DOSE FREQUENCY,1Q3W
     Dates: start: 20210608
  45. DOXORUBICIN [Suspect]
     Active Substance: DOXORUBICIN
     Dosage: 100 MILLIGRAM,QD
     Dates: start: 20210608, end: 20210608
  46. DOXORUBICIN [Suspect]
     Active Substance: DOXORUBICIN
     Dosage: 100 MILLIGRAM,QD
     Dates: start: 20210629, end: 20210629
  47. DOXORUBICIN HYDROCHLORIDE [Suspect]
     Active Substance: DOXORUBICIN HYDROCHLORIDE
     Indication: Diffuse large B-cell lymphoma stage III
     Dosage: 50MG/M2, 1Q3W
     Route: 042
     Dates: start: 20210608
  48. DOXORUBICIN HYDROCHLORIDE [Suspect]
     Active Substance: DOXORUBICIN HYDROCHLORIDE
     Dosage: 100 MG, SINGLE, SOLUTION FOR INFUSION
     Dates: start: 20210629, end: 20210629
  49. DOXORUBICIN HYDROCHLORIDE [Suspect]
     Active Substance: DOXORUBICIN HYDROCHLORIDE
     Dosage: 100 MG, SINGLE, SOLUTION FOR INFUSION
     Dates: start: 20210608, end: 20210608
  50. DOXORUBICIN HYDROCHLORIDE [Suspect]
     Active Substance: DOXORUBICIN HYDROCHLORIDE
     Indication: Diffuse large B-cell lymphoma stage III
     Dosage: 50 MG/M2, 1 EVERY 3 WEEKS (1Q3W)
     Route: 042
     Dates: start: 20210608, end: 20210921
  51. CYCLOPHOSPHAMIDE [Suspect]
     Active Substance: CYCLOPHOSPHAMIDE
     Indication: Diffuse large B-cell lymphoma stage III
     Dosage: 750 MG/M2, EVERY 3 WEEKS, DOSE FREQUENCY:1Q3W
     Route: 042
     Dates: start: 20210608, end: 20210810
  52. CYCLOPHOSPHAMIDE [Suspect]
     Active Substance: CYCLOPHOSPHAMIDE
     Dosage: 1500 MG, QD
     Route: 042
     Dates: start: 20210629, end: 20210629
  53. CYCLOPHOSPHAMIDE [Suspect]
     Active Substance: CYCLOPHOSPHAMIDE
     Dosage: 1 DAY
     Route: 042
     Dates: start: 20210608, end: 20210608
  54. CYCLOPHOSPHAMIDE [Suspect]
     Active Substance: CYCLOPHOSPHAMIDE
     Dosage: AT CYCLE 5 DAY 1 (C5D1)
     Route: 042
     Dates: start: 20210831
  55. CYCLOPHOSPHAMIDE [Suspect]
     Active Substance: CYCLOPHOSPHAMIDE
     Dosage: 750 MG/M2
     Route: 065
     Dates: start: 20210810
  56. CYCLOPHOSPHAMIDE [Suspect]
     Active Substance: CYCLOPHOSPHAMIDE
     Dosage: 750 MG/M2
     Route: 042
     Dates: start: 20210921, end: 20210921
  57. EPCORITAMAB [Suspect]
     Active Substance: EPCORITAMAB
     Indication: Diffuse large B-cell lymphoma stage III
     Dosage: DUOBODY-CD3XCD20, FULL DOSE: 48 MG, WEEKLY
     Route: 058
     Dates: start: 20210622, end: 20210720
  58. EPCORITAMAB [Suspect]
     Active Substance: EPCORITAMAB
     Dosage: DUOBODY-CD3XCD20, INTERMEDIATE DOSE: 0.8 MG, SINGLE
     Route: 058
     Dates: start: 20210615, end: 20210615
  59. EPCORITAMAB [Suspect]
     Active Substance: EPCORITAMAB
     Dosage: DUOBODY-CD3XCD20, PRIMING DOSE: 0.16 MG, SINGLE
     Route: 058
     Dates: start: 20210608, end: 20210608
  60. EPCORITAMAB [Suspect]
     Active Substance: EPCORITAMAB
     Dosage: DUOBODY-CD3XCD20, FULL DOSE: 48 MG, WEEKLY
     Route: 058
     Dates: start: 20210803, end: 20210824
  61. EPCORITAMAB [Suspect]
     Active Substance: EPCORITAMAB
     Indication: Diffuse large B-cell lymphoma stage III
     Dosage: DUOBODY-CD3XCD20, FULL DOSE: 48 MG, WEEKLY
     Route: 058
     Dates: start: 20210622, end: 20210720
  62. EPCORITAMAB [Suspect]
     Active Substance: EPCORITAMAB
     Dosage: DUOBODY-CD3XCD20, INTERMEDIATE DOSE: 0.8 MG, SINGLE
     Route: 058
     Dates: start: 20210615, end: 20210615
  63. EPCORITAMAB [Suspect]
     Active Substance: EPCORITAMAB
     Dosage: FULL DOSE: 48MG 1Q4W
     Route: 058
     Dates: start: 20210831
  64. EPCORITAMAB [Suspect]
     Active Substance: EPCORITAMAB
     Dosage: DUOBODY-CD3XCD20, PRIMING DOSE: 0.16 MG, SINGLE
     Route: 058
     Dates: start: 20210608, end: 20210608
  65. EPCORITAMAB [Suspect]
     Active Substance: EPCORITAMAB
     Dosage: DUOBODY-CD3XCD20, FULL DOSE: 48 MG, WEEKLY
     Route: 058
     Dates: start: 20210803, end: 20210824
  66. METHYLPREDNISOLONE [Suspect]
     Active Substance: METHYLPREDNISOLONE
     Indication: Diffuse large B-cell lymphoma stage III
     Dosage: 80 MG, 1X/DAY
     Route: 048
     Dates: start: 20210629, end: 20210703
  67. METHYLPREDNISOLONE [Suspect]
     Active Substance: METHYLPREDNISOLONE
     Indication: Diffuse large B-cell lymphoma stage III
     Dosage: 80 MG, 1X/DAY
     Route: 048
     Dates: start: 20210720, end: 20210724
  68. METHYLPREDNISOLONE [Suspect]
     Active Substance: METHYLPREDNISOLONE
     Dosage: 80 MG, 1X/DAY
     Route: 065
     Dates: start: 20210810
  69. METHYLPREDNISOLONE [Suspect]
     Active Substance: METHYLPREDNISOLONE
     Dosage: 80 MG, QD
     Route: 048
     Dates: start: 20210608, end: 20210612
  70. METHYLPREDNISOLONE [Suspect]
     Active Substance: METHYLPREDNISOLONE
     Dosage: 80 MG, QD
     Route: 048
     Dates: start: 20210901, end: 20210904
  71. METHYLPREDNISOLONE [Suspect]
     Active Substance: METHYLPREDNISOLONE
     Dosage: 80 MG, QD
     Route: 042
     Dates: start: 20210922, end: 20210925
  72. METHYLPREDNISOLONE [Suspect]
     Active Substance: METHYLPREDNISOLONE
     Dosage: 80 MG
     Route: 065
     Dates: start: 20211012, end: 20211012
  73. METHYLPREDNISOLONE [Suspect]
     Active Substance: METHYLPREDNISOLONE
     Dosage: 80 MILLIGRAM,QD
     Route: 042
     Dates: start: 20210922, end: 20210925
  74. METHYLPREDNISOLONE [Suspect]
     Active Substance: METHYLPREDNISOLONE
     Dosage: 80 MILLIGRAM,QD
     Route: 042
     Dates: start: 20210921, end: 20210921
  75. METHYLPREDNISOLONE [Suspect]
     Active Substance: METHYLPREDNISOLONE
     Dosage: 80 MILLIGRAM,QD, TABLET
     Route: 048
     Dates: start: 20210629, end: 20210703
  76. METHYLPREDNISOLONE [Suspect]
     Active Substance: METHYLPREDNISOLONE
     Dosage: 80 MILLIGRAM,PRN
     Route: 065
     Dates: start: 20211012, end: 20211012
  77. METHYLPREDNISOLONE [Suspect]
     Active Substance: METHYLPREDNISOLONE
     Dosage: 80 MILLIGRAM,QD, TABLET
     Route: 048
     Dates: start: 20210608, end: 20210612
  78. METHYLPREDNISOLONE [Suspect]
     Active Substance: METHYLPREDNISOLONE
     Dosage: 80 MILLIGRAM,QD
     Route: 065
     Dates: start: 20210925
  79. METHYLPREDNISOLONE [Suspect]
     Active Substance: METHYLPREDNISOLONE
     Dosage: 80 MILLIGRAM,QD, TABLET
     Route: 048
     Dates: start: 20210720, end: 20210724
  80. METHYLPREDNISOLONE [Suspect]
     Active Substance: METHYLPREDNISOLONE
     Dosage: 80 MILLIGRAM,QD, TABLET
     Route: 048
     Dates: start: 20210901, end: 20210904
  81. METHYLPREDNISOLONE [Suspect]
     Active Substance: METHYLPREDNISOLONE
     Dosage: 80 MILLIGRAM,PRN
     Route: 042
     Dates: start: 20210831
  82. METHYLPREDNISOLONE [Suspect]
     Active Substance: METHYLPREDNISOLONE
     Dosage: 80 MILLIGRAM,PRN
     Route: 065
     Dates: start: 20210810
  83. METHYLPREDNISOLONE [Suspect]
     Active Substance: METHYLPREDNISOLONE
     Dosage: 80 MILLIGRAM,QD
     Dates: start: 20210925
  84. METHYLPREDNISOLONE [Suspect]
     Active Substance: METHYLPREDNISOLONE
     Dosage: 80 MILLIGRAM,PRN
     Dates: start: 20211012, end: 20211012
  85. METHYLPREDNISOLONE [Suspect]
     Active Substance: METHYLPREDNISOLONE
     Dosage: 80 MILLIGRAM,QD
     Route: 042
     Dates: start: 20210921, end: 20210921
  86. METHYLPREDNISOLONE [Suspect]
     Active Substance: METHYLPREDNISOLONE
     Dosage: 80 MILLIGRAM, QD
     Route: 042
     Dates: start: 20210607, end: 20210607
  87. METHYLPREDNISOLONE [Suspect]
     Active Substance: METHYLPREDNISOLONE
     Indication: Diffuse large B-cell lymphoma stage III
     Dosage: 80 MG, 1X/DAY, 80 MG, QD
     Route: 048
     Dates: start: 20210608, end: 20210612
  88. METHYLPREDNISOLONE [Suspect]
     Active Substance: METHYLPREDNISOLONE
     Dosage: 80 MG, 1X/DAY, 80 MG, QD
     Route: 048
     Dates: start: 20210720, end: 20210724
  89. METHYLPREDNISOLONE [Suspect]
     Active Substance: METHYLPREDNISOLONE
     Dosage: 80 MG, 1X/DAY, 80 MG, QD
     Route: 048
     Dates: start: 20210629, end: 20210703
  90. METHYLPREDNISOLONE [Suspect]
     Active Substance: METHYLPREDNISOLONE
     Dosage: 80 MG, QD
     Route: 065
     Dates: start: 20210925
  91. METHYLPREDNISOLONE [Suspect]
     Active Substance: METHYLPREDNISOLONE
     Dosage: 80 MG, 1X/DAY
     Route: 048
     Dates: start: 20210901, end: 20210904
  92. METHYLPREDNISOLONE [Suspect]
     Active Substance: METHYLPREDNISOLONE
     Dosage: 80 MG, 1X/DAY
     Route: 042
     Dates: start: 20210922, end: 20210925
  93. METHYLPREDNISOLONE [Suspect]
     Active Substance: METHYLPREDNISOLONE
     Dosage: 80 MG, 1X/DAY
     Route: 042
     Dates: start: 20210921, end: 20210921
  94. PREDNISONE [Suspect]
     Active Substance: PREDNISONE
     Indication: Diffuse large B-cell lymphoma stage III
     Dosage: 80 MG, QD
     Route: 048
     Dates: start: 20210629, end: 20210703
  95. PREDNISONE [Suspect]
     Active Substance: PREDNISONE
     Dosage: 80 MILLIGRAM, QD
     Route: 048
     Dates: start: 20210608, end: 20210612
  96. PREDNISONE [Suspect]
     Active Substance: PREDNISONE
     Dosage: 80 MILLIGRAM, QD
     Route: 048
     Dates: start: 20210720, end: 20210724
  97. PREDNISONE [Suspect]
     Active Substance: PREDNISONE
     Indication: Diffuse large B-cell lymphoma
     Dosage: TABLET
     Dates: start: 20210629, end: 20210703
  98. PREDNISONE [Suspect]
     Active Substance: PREDNISONE
     Dosage: TABLET
     Dates: start: 20210608, end: 20210612
  99. PREDNISONE [Suspect]
     Active Substance: PREDNISONE
     Dosage: TABLET
     Dates: start: 20210720, end: 20210724
  100. VINCRISTINE [Suspect]
     Active Substance: VINCRISTINE
     Indication: Diffuse large B-cell lymphoma stage III
     Dosage: 1.4 MG/M2, 1Q3W
     Route: 042
     Dates: start: 20210608
  101. VINCRISTINE [Suspect]
     Active Substance: VINCRISTINE
     Indication: Diffuse large B-cell lymphoma stage III
     Dosage: 1.4 MILLIGRAM/SQ. METER,1Q3W, DOSE FREQUENCY:1Q3W
     Route: 042
     Dates: start: 20210608
  102. VINCRISTINE [Suspect]
     Active Substance: VINCRISTINE
     Dosage: 1.4 MG/M2, 1 EVERY 3 WEEKS (1Q3W)
     Route: 042
     Dates: start: 20210608, end: 20210810
  103. VINCRISTINE [Suspect]
     Active Substance: VINCRISTINE
     Dosage: 2 MG, QD
     Route: 042
     Dates: start: 20210629, end: 20210629
  104. VINCRISTINE [Suspect]
     Active Substance: VINCRISTINE
     Dosage: 2 MG, QD
     Route: 042
     Dates: start: 20210608, end: 20210608
  105. VINCRISTINE [Suspect]
     Active Substance: VINCRISTINE
     Dosage: 1.4 MG/M2, 1 EVERY 3 WEEKS (1Q3W)
     Route: 042
     Dates: start: 20210608, end: 20210921
  106. VINCRISTINE [Suspect]
     Active Substance: VINCRISTINE
     Dosage: 1.4 MG/M2,PRN
     Route: 065
     Dates: start: 20210810
  107. VINCRISTINE [Suspect]
     Active Substance: VINCRISTINE
     Dosage: AT CYCLE 5 DAY 1 (C5D1)
     Route: 065
     Dates: start: 20210810
  108. VINCRISTINE [Suspect]
     Active Substance: VINCRISTINE
     Dosage: 1.4 MILLIGRAM/SQ. METER,1Q3W
     Route: 042
     Dates: start: 20210608
  109. VINCRISTINE [Suspect]
     Active Substance: VINCRISTINE
     Dosage: 2 MG, SINGLE
     Dates: start: 20210629, end: 20210629
  110. VINCRISTINE [Suspect]
     Active Substance: VINCRISTINE
     Dosage: 2 MG, SINGLE
     Dates: start: 20210608, end: 20210608
  111. VINCRISTINE [Suspect]
     Active Substance: VINCRISTINE
     Indication: Diffuse large B-cell lymphoma stage III
     Dosage: 1.4 MG/M2
     Route: 065
     Dates: start: 20210810
  112. VINCRISTINE [Suspect]
     Active Substance: VINCRISTINE
     Dosage: AT CYCLE 5 DAY 1 (C5D1)
     Route: 065
     Dates: start: 20210810
  113. VINCRISTINE [Suspect]
     Active Substance: VINCRISTINE
     Dosage: 1.4 MG/M2, 1 EVERY 3 WEEKS (1Q3W)
     Dates: start: 20210608, end: 20210921
  114. VINCRISTINE [Suspect]
     Active Substance: VINCRISTINE
     Dosage: AT CYCLE 5 DAY 1 (C5D1)
     Dates: start: 20210831
  115. VINCRISTINE [Suspect]
     Active Substance: VINCRISTINE
     Dosage: 1.4 MILLIGRAM/SQ. METER,1Q3W, DOSE FREQUENCY:1Q3W
     Dates: start: 20210608
  116. VINCRISTINE [Suspect]
     Active Substance: VINCRISTINE
     Dosage: 1.4 MG/M2
     Dates: start: 20210810
  117. VINCRISTINE [Suspect]
     Active Substance: VINCRISTINE
     Dosage: 2 MILLIGRAM,QD
     Dates: start: 20210608, end: 20210608
  118. VINCRISTINE [Suspect]
     Active Substance: VINCRISTINE
     Dosage: 2 MILLIGRAM,QD
     Dates: start: 20210629, end: 20210629
  119. VINCRISTINE SULFATE [Suspect]
     Active Substance: VINCRISTINE SULFATE
     Indication: Diffuse large B-cell lymphoma stage III
     Dosage: 1.4 MG/M2, EVERY 3 WEEKS
     Route: 042
     Dates: start: 20210608, end: 20210810
  120. VINCRISTINE SULFATE [Suspect]
     Active Substance: VINCRISTINE SULFATE
     Dosage: 1.4 MG/M2
     Route: 042
     Dates: start: 20210921, end: 20210921
  121. VINCRISTINE SULFATE [Suspect]
     Active Substance: VINCRISTINE SULFATE
     Dosage: 1.4 MG/M2,EVERY 3 WK
     Route: 042
     Dates: start: 20210608, end: 20210810
  122. VINCRISTINE SULFATE [Suspect]
     Active Substance: VINCRISTINE SULFATE
     Dosage: 1.4 MG/M2,PRN
     Route: 042
     Dates: start: 20210921, end: 20210921
  123. VINCRISTINE SULFATE [Suspect]
     Active Substance: VINCRISTINE SULFATE
     Dosage: 1.4 MG/M2,PRN
     Route: 042
     Dates: start: 20210921, end: 20210921
  124. VINCRISTINE SULFATE [Suspect]
     Active Substance: VINCRISTINE SULFATE
     Dosage: 1.4 MG/M2,EVERY 3 WK
     Route: 042
     Dates: start: 20210608, end: 20210810
  125. ASPIRIN [Concomitant]
     Active Substance: ASPIRIN
     Indication: Product used for unknown indication
     Dosage: UNK, PRN
     Route: 065
     Dates: start: 20210812, end: 20210921
  126. ASPIRIN [Concomitant]
     Active Substance: ASPIRIN
     Dosage: UNK, PRN
     Route: 065
     Dates: start: 20210812, end: 20210901
  127. ACYCLOVIR [Concomitant]
     Active Substance: ACYCLOVIR
     Indication: Product used for unknown indication
     Dosage: ONGOING
     Route: 065
     Dates: start: 20210528
  128. ASPIRIN [Concomitant]
     Active Substance: ASPIRIN
     Indication: Product used for unknown indication
     Dosage: UNK
     Route: 065
     Dates: start: 20210812, end: 20210902
  129. ASCORBIC ACID [Concomitant]
     Active Substance: ASCORBIC ACID
     Indication: Product used for unknown indication
     Dosage: UNK
     Route: 065
     Dates: start: 20151202
  130. CARVEDILOL [Concomitant]
     Active Substance: CARVEDILOL
     Indication: Product used for unknown indication
     Dosage: UNK, PRN
     Route: 065
     Dates: start: 20150710
  131. CEFTAZIDIME [Concomitant]
     Active Substance: CEFTAZIDIME
     Indication: Product used for unknown indication
     Dosage: UNK, PRN
     Route: 065
     Dates: start: 20210907, end: 20210910
  132. CETIRIZINE [Concomitant]
     Active Substance: CETIRIZINE HYDROCHLORIDE
     Indication: Product used for unknown indication
     Dosage: 10 MILLIGRAM,PRN
     Route: 048
     Dates: start: 20211012, end: 20211012
  133. CETIRIZINE [Concomitant]
     Active Substance: CETIRIZINE HYDROCHLORIDE
     Dosage: 10 MILLIGRAM,PRN
     Route: 048
     Dates: start: 20211012, end: 20211012
  134. CIPROFLOXACIN [Concomitant]
     Active Substance: CIPROFLOXACIN
     Indication: Product used for unknown indication
     Dosage: UNK
     Dates: start: 20210706, end: 20210710
  135. CIPROFLOXACIN HYDROCHLORIDE [Concomitant]
     Active Substance: CIPROFLOXACIN HYDROCHLORIDE
     Dosage: UNK
     Dates: start: 20210706, end: 20210710
  136. CITALOPRAM [Concomitant]
     Active Substance: CITALOPRAM HYDROBROMIDE
     Indication: Product used for unknown indication
     Dosage: UNK, PRN
     Route: 065
     Dates: start: 20150710
  137. CITALOPRAM [Concomitant]
     Active Substance: CITALOPRAM HYDROBROMIDE
     Dosage: UNK, PRN
     Dates: start: 2008
  138. CLOPIDOGREL [Concomitant]
     Active Substance: CLOPIDOGREL BISULFATE
     Indication: Product used for unknown indication
     Dosage: UNK, PRN
     Route: 065
     Dates: start: 20210812
  139. CLOPIDOGREL [Concomitant]
     Active Substance: CLOPIDOGREL BISULFATE
     Dosage: UNK,NEW DOSING REGIMEN
     Route: 065
  140. COTRIMOXAZOLE [Concomitant]
     Active Substance: SULFAMETHOXAZOLE\TRIMETHOPRIM
     Indication: Product used for unknown indication
     Dosage: UNK, PRN
     Route: 065
     Dates: start: 20210607
  141. MEBEVERINE HYDROCHLORIDE [Concomitant]
     Active Substance: MEBEVERINE HYDROCHLORIDE
     Indication: Product used for unknown indication
     Dosage: UNK, PRN
     Route: 065
     Dates: start: 20201028
  142. D VITAL [CALCIUM CARBONATE;COLECALCIFEROL] [Concomitant]
     Indication: Product used for unknown indication
     Dosage: UNK
     Dates: start: 2021
  143. FOLIC ACID [Concomitant]
     Active Substance: FOLIC ACID
     Indication: Product used for unknown indication
     Dosage: UNK
     Dates: start: 2021
  144. FOSAMAX [Concomitant]
     Active Substance: ALENDRONATE SODIUM
     Indication: Product used for unknown indication
     Dosage: UNK, PRN
     Route: 065
     Dates: start: 20150921
  145. IMODIUM [Concomitant]
     Active Substance: LOPERAMIDE HYDROCHLORIDE
     Indication: Product used for unknown indication
     Dosage: UNK
     Dates: start: 20210911, end: 20210911
  146. LIPEGFILGRASTIM [Concomitant]
     Active Substance: LIPEGFILGRASTIM
     Indication: Product used for unknown indication
     Dosage: UNK, PRN
     Route: 065
     Dates: start: 20210831, end: 20210921
  147. LIPEGFILGRASTIM [Concomitant]
     Active Substance: LIPEGFILGRASTIM
     Dosage: UNK
     Dates: start: 20210629, end: 20210720
  148. LIPEGFILGRASTIM [Concomitant]
     Active Substance: LIPEGFILGRASTIM
     Dosage: UNK
     Route: 065
     Dates: start: 20210810, end: 20210831
  149. LORMETAZEPAM [Concomitant]
     Active Substance: LORMETAZEPAM
     Indication: Product used for unknown indication
     Dosage: ONGOING, UNK, PRN
     Route: 065
     Dates: start: 2002
  150. MAGNESIUM SULFATE [Concomitant]
     Active Substance: MAGNESIUM SULFATE
     Indication: Product used for unknown indication
     Dosage: UNK
     Dates: start: 20210928, end: 20210930
  151. METHYLPREDNISOLONE [Concomitant]
     Active Substance: METHYLPREDNISOLONE
     Indication: Prophylaxis
     Dosage: 80 MILLIGRAM
     Route: 048
     Dates: start: 20210608, end: 20210612
  152. METHYLPREDNISOLONE [Concomitant]
     Active Substance: METHYLPREDNISOLONE
     Dosage: 80 MILLIGRAM
     Route: 048
     Dates: start: 20210720, end: 20210724
  153. METHYLPREDNISOLONE [Concomitant]
     Active Substance: METHYLPREDNISOLONE
     Dosage: 80 MILLIGRAM
     Route: 048
     Dates: start: 20210629, end: 20210703
  154. METHYLPREDNISOLONE [Concomitant]
     Active Substance: METHYLPREDNISOLONE
     Dosage: 80 MILLIGRAM
     Route: 042
     Dates: start: 20210831, end: 20210831
  155. METHYLPREDNISOLONE [Concomitant]
     Active Substance: METHYLPREDNISOLONE
     Dosage: 80 MG
     Route: 042
     Dates: start: 20211012, end: 20211012
  156. METHYLPREDNISOLONE [Concomitant]
     Active Substance: METHYLPREDNISOLONE
     Dosage: 80 MILLIGRAM,PRN
     Route: 042
     Dates: start: 20210831, end: 20210831
  157. METHYLPREDNISOLONE [Concomitant]
     Active Substance: METHYLPREDNISOLONE
     Dosage: 80 MILLIGRAM,PRN
     Route: 042
     Dates: start: 20210629, end: 20210703
  158. METHYLPREDNISOLONE [Concomitant]
     Active Substance: METHYLPREDNISOLONE
     Dosage: 80 MILLIGRAM,PRN
     Route: 042
     Dates: start: 20210720, end: 20210724
  159. METHYLPREDNISOLONE [Concomitant]
     Active Substance: METHYLPREDNISOLONE
     Dosage: 80 MILLIGRAM,PRN
     Route: 042
     Dates: start: 20210608, end: 20210612
  160. MIRTAZAPINE [Concomitant]
     Active Substance: MIRTAZAPINE
     Indication: Product used for unknown indication
     Dosage: ONGOING, PRN
     Route: 065
     Dates: start: 20201028
  161. MOBIFLEX [ASCORBIC ACID;COLLAGEN;MAGNESIUM;TOCOPHERYL ACETATE;ZINC] [Concomitant]
     Indication: Product used for unknown indication
     Dosage: UNK
     Dates: start: 20151202, end: 2021
  162. MOBIFLEX NEO [Concomitant]
     Indication: Product used for unknown indication
     Dosage: UNK, PRN
     Route: 065
     Dates: start: 20151202
  163. FOSFOMYCIN TROMETHAMINE [Concomitant]
     Active Substance: FOSFOMYCIN TROMETHAMINE
     Indication: Product used for unknown indication
     Dosage: UNK
     Dates: start: 20210831, end: 20210907
  164. MOVICOL [Concomitant]
     Active Substance: POLYETHYLENE GLYCOL 3350\POTASSIUM CHLORIDE\SODIUM BICARBONATE\SODIUM CHLORIDE
     Indication: Product used for unknown indication
     Dosage: UNK
     Dates: start: 20210607
  165. NYSTATIN [Concomitant]
     Active Substance: NYSTATIN
     Indication: Product used for unknown indication
     Dosage: UNK
     Dates: start: 20210813, end: 20210907
  166. OMEPRAZOLE [Concomitant]
     Active Substance: OMEPRAZOLE
     Indication: Product used for unknown indication
     Dosage: ONGOING, PRN
     Route: 065
     Dates: start: 20081002, end: 20210814
  167. OMEPRAZOLE [Concomitant]
     Active Substance: OMEPRAZOLE
     Dosage: UNK,NEW DOSING REGIMEN
     Route: 065
  168. OMEPRAZOLE [Concomitant]
     Active Substance: OMEPRAZOLE
     Dosage: UNK, PRN
     Dates: start: 20210817
  169. ONDANSETRON [Concomitant]
     Active Substance: ONDANSETRON
     Indication: Product used for unknown indication
     Dosage: UNK
     Dates: start: 20210831, end: 20210921
  170. PANTOMED [DEXPANTHENOL] [Concomitant]
     Indication: Product used for unknown indication
     Dosage: UNK
     Dates: start: 20210908, end: 20210911
  171. ACETAMINOPHEN [Concomitant]
     Active Substance: ACETAMINOPHEN
     Indication: Premedication
     Dosage: 1 G
     Route: 048
     Dates: start: 20210720, end: 20210803
  172. ACETAMINOPHEN [Concomitant]
     Active Substance: ACETAMINOPHEN
     Dosage: UNK
     Route: 065
     Dates: start: 20201020, end: 20210803
  173. ACETAMINOPHEN [Concomitant]
     Active Substance: ACETAMINOPHEN
     Dosage: 1 G
     Route: 048
     Dates: start: 20210803, end: 20210803
  174. ACETAMINOPHEN [Concomitant]
     Active Substance: ACETAMINOPHEN
     Dosage: 1 G
     Route: 048
     Dates: start: 20210831, end: 20210831
  175. ACETAMINOPHEN [Concomitant]
     Active Substance: ACETAMINOPHEN
     Dosage: 1 GRAM,PRN
     Route: 048
     Dates: start: 20210921, end: 20211012
  176. ACETAMINOPHEN [Concomitant]
     Active Substance: ACETAMINOPHEN
     Dosage: 1 G
     Route: 048
     Dates: start: 20210713
  177. ACETAMINOPHEN [Concomitant]
     Active Substance: ACETAMINOPHEN
     Dosage: UNK
     Route: 065
     Dates: start: 20081028
  178. ACETAMINOPHEN [Concomitant]
     Active Substance: ACETAMINOPHEN
     Dosage: UNK, PRN
     Route: 048
     Dates: start: 20201028, end: 20210803
  179. ACETAMINOPHEN [Concomitant]
     Active Substance: ACETAMINOPHEN
     Dosage: 1 GRAM,PRN
     Route: 048
     Dates: start: 20210921, end: 20211012
  180. ACETAMINOPHEN [Concomitant]
     Active Substance: ACETAMINOPHEN
     Dosage: 1 GRAM,PRN
     Route: 048
     Dates: start: 20210803, end: 20210803
  181. ACETAMINOPHEN [Concomitant]
     Active Substance: ACETAMINOPHEN
     Dosage: 1 GRAM,PRN
     Route: 048
     Dates: start: 20210831, end: 20210831
  182. ACETAMINOPHEN [Concomitant]
     Active Substance: ACETAMINOPHEN
     Dosage: 1 GRAM,PRN
     Route: 048
     Dates: start: 20210713, end: 20210831
  183. PHENERGAN [Concomitant]
     Active Substance: PROMETHAZINE HYDROCHLORIDE
     Indication: Premedication
     Dosage: UNKNOWN DOSE (TBC)
     Route: 042
     Dates: start: 20210824, end: 20210824
  184. PHENERGAN [Concomitant]
     Active Substance: PROMETHAZINE HYDROCHLORIDE
     Dosage: UNK
     Route: 042
     Dates: start: 20210821, end: 20210821
  185. PHENERGAN [Concomitant]
     Active Substance: PROMETHAZINE HYDROCHLORIDE
     Dosage: 12 MG
     Route: 048
     Dates: start: 20210803, end: 20210803
  186. PHENERGAN [Concomitant]
     Active Substance: PROMETHAZINE HYDROCHLORIDE
     Dosage: UNK
     Route: 042
     Dates: start: 20210831, end: 20210831
  187. PHENERGAN [Concomitant]
     Active Substance: PROMETHAZINE HYDROCHLORIDE
     Dosage: DOSE UNSPECIFIED
     Dates: start: 20210921, end: 20210921
  188. PHENERGAN [Concomitant]
     Active Substance: PROMETHAZINE HYDROCHLORIDE
     Dosage: UNK
     Dates: start: 20210824, end: 20210824
  189. PHENERGAN [Concomitant]
     Active Substance: PROMETHAZINE HYDROCHLORIDE
     Dosage: 12.5 MG, PRN
     Route: 042
     Dates: start: 20210831, end: 20210831
  190. PHENERGAN [Concomitant]
     Active Substance: PROMETHAZINE HYDROCHLORIDE
     Dosage: 12.5 MG, PRN
     Route: 042
     Dates: start: 20210921, end: 20210921
  191. POTASSIUM CHLORIDE [Concomitant]
     Active Substance: POTASSIUM CHLORIDE
     Indication: Product used for unknown indication
     Dosage: UNK
     Dates: start: 20210907, end: 20210930
  192. PROMETHAZINE [Concomitant]
     Active Substance: PROMETHAZINE HYDROCHLORIDE
     Indication: Premedication
     Dosage: 12 MG
     Route: 042
     Dates: start: 20210720, end: 20210803
  193. PROMETHAZINE [Concomitant]
     Active Substance: PROMETHAZINE HYDROCHLORIDE
     Dosage: 12 MG
     Route: 048
     Dates: start: 20210803, end: 20210803
  194. PROMETHAZINE [Concomitant]
     Active Substance: PROMETHAZINE HYDROCHLORIDE
     Dosage: UNKNOWN DOSE (TBC)
     Route: 042
     Dates: start: 20210824
  195. PROMETHAZINE [Concomitant]
     Active Substance: PROMETHAZINE HYDROCHLORIDE
     Dosage: UNK
     Route: 042
     Dates: start: 20210831, end: 20210831
  196. PROMETHAZINE [Concomitant]
     Active Substance: PROMETHAZINE HYDROCHLORIDE
     Dosage: 12 MG
     Route: 042
     Dates: start: 20210713
  197. PROMETHAZINE [Concomitant]
     Active Substance: PROMETHAZINE HYDROCHLORIDE
     Dosage: 12 MILLIGRAM,PRN
     Route: 042
     Dates: start: 20210713
  198. PROMETHAZINE [Concomitant]
     Active Substance: PROMETHAZINE HYDROCHLORIDE
     Dosage: 12 MILLIGRAM,PRN
     Route: 042
     Dates: start: 20210720, end: 20210803
  199. SOLU-MEDROL [Concomitant]
     Active Substance: METHYLPREDNISOLONE SODIUM SUCCINATE
     Indication: Product used for unknown indication
     Dosage: 80 MILLIGRAM,PRN
     Route: 042
     Dates: start: 20210824, end: 20210824
  200. SOLU-MEDROL [Concomitant]
     Active Substance: METHYLPREDNISOLONE SODIUM SUCCINATE
     Dosage: 80 MILLIGRAM,PRN
     Route: 042
     Dates: start: 20210824, end: 20210824
  201. ATORVASTATIN [Concomitant]
     Active Substance: ATORVASTATIN
     Indication: Product used for unknown indication
     Dosage: ONGOING, PRN
     Route: 065
     Dates: start: 20201028, end: 20211207
  202. ATORVASTATIN [Concomitant]
     Active Substance: ATORVASTATIN
     Dosage: UNK, PRN
     Route: 065
     Dates: start: 20201020
  203. ATORVASTATIN [Concomitant]
     Active Substance: ATORVASTATIN
     Dosage: UNK
     Route: 065
     Dates: start: 20210812, end: 20211207
  204. TRAMADOL HYDROCHLORIDE [Concomitant]
     Active Substance: TRAMADOL HYDROCHLORIDE
     Indication: Product used for unknown indication
     Dosage: ONGOING, UNK, PRN
     Route: 065
     Dates: start: 202105
  205. URSODIOL [Concomitant]
     Active Substance: URSODIOL
     Indication: Product used for unknown indication
     Dosage: ONGOING, UNK, PRN
     Route: 065
     Dates: start: 20150710
  206. ZOVIRAX [Concomitant]
     Active Substance: ACYCLOVIR
     Indication: Product used for unknown indication
     Dosage: UNK, PRN
     Route: 065
     Dates: start: 20210528
  207. ALLOPURINOL [Concomitant]
     Active Substance: ALLOPURINOL
     Indication: Product used for unknown indication
     Dosage: ONGOING
     Route: 065
     Dates: start: 20210528

REACTIONS (4)
  - Neutrophil count decreased [Recovered/Resolved]
  - Escherichia urinary tract infection [Recovered/Resolved]
  - Urinary tract infection [Recovered/Resolved]
  - Gastrointestinal infection [Recovered/Resolved]

NARRATIVE: CASE EVENT DATE: 20210725
